FAERS Safety Report 8046869-3 (Version None)
Quarter: 2012Q1

REPORT INFORMATION
  Report Type: 
  Country: None (occurrence: None)
  Receive Date: 20120116
  Receipt Date: 20120106
  Transmission Date: 20120608
  Serious: Yes (Hospitalization)
  Sender: FDA-Public Use
  Company Number: US-BAYER-2011-105419

PATIENT
  Age: 17 Year
  Sex: Female
  Weight: 125.17 kg

DRUGS (6)
  1. YAZ [Suspect]
     Indication: CONTRACEPTION
     Dosage: UNK
     Dates: start: 20090130, end: 20100520
  2. DROSPIRENONE AND ETHINYL ESTRADIOL [Suspect]
     Indication: CONTRACEPTION
     Dosage: UNK
     Dates: start: 20100620, end: 20100912
  3. WELLBUTRIN [Concomitant]
     Dosage: UNK, QD
     Dates: start: 20110901
  4. BENADRYL [Concomitant]
  5. WELLBUTRIN [Concomitant]
     Indication: DEPRESSION
     Dosage: UNK UNK, QD
     Dates: start: 20090101, end: 20100101
  6. ZOLOFT [Concomitant]
     Indication: DEPRESSION
     Dosage: UNK UNK, QD
     Dates: start: 20090101

REACTIONS (7)
  - BILIARY TRACT DISORDER [None]
  - NAUSEA [None]
  - CHOLECYSTITIS CHRONIC [None]
  - ABDOMINAL PAIN [None]
  - PROCEDURAL VOMITING [None]
  - PROCEDURAL PAIN [None]
  - BILIARY DYSKINESIA [None]
